FAERS Safety Report 4824602-3 (Version None)
Quarter: 2005Q4

REPORT INFORMATION
  Report Type: 
  Country: None (occurrence: None)
  Receive Date: 20051110
  Receipt Date: 20051027
  Transmission Date: 20060501
  Serious: Yes (Other)
  Sender: FDA-Public Use
  Company Number: ESWYE094427OCT05

PATIENT
  Sex: Female

DRUGS (5)
  1. ENBREL [Suspect]
     Indication: RHEUMATOID ARTHRITIS
     Route: 058
     Dates: start: 20050706, end: 20050822
  2. ENBREL [Suspect]
     Route: 058
     Dates: start: 20050829, end: 20050919
  3. DEFLAZACORT [Concomitant]
     Dosage: 7.5 MG
     Route: 065
  4. FROBEN [Concomitant]
     Dosage: UNKNOWN
     Route: 065
  5. UNSPECIFIED ANTIHYPERTENSIVE AGENT [Concomitant]
     Dosage: UNKNOWN
     Route: 065

REACTIONS (3)
  - ANGINA PECTORIS [None]
  - PRURITUS [None]
  - RASH [None]
